FAERS Safety Report 4998985-8 (Version None)
Quarter: 2006Q2

REPORT INFORMATION
  Report Type: 
  Country: None (occurrence: None)
  Receive Date: 20060510
  Receipt Date: 20050414
  Transmission Date: 20061013
  Serious: Yes (Hospitalization, Disabling)
  Sender: FDA-Public Use
  Company Number: US-MERCK-0504USA02558

PATIENT
  Age: 51 Year
  Sex: Male
  Weight: 68 kg

DRUGS (3)
  1. VIOXX [Suspect]
     Indication: PAIN
     Route: 048
  2. CELEBREX [Concomitant]
     Route: 065
  3. LITHIUM SULFATE [Concomitant]
     Route: 065

REACTIONS (15)
  - ANGINA UNSTABLE [None]
  - ASTHENIA [None]
  - ATELECTASIS [None]
  - ATRIAL FIBRILLATION [None]
  - BIPOLAR DISORDER [None]
  - CARDIAC FAILURE [None]
  - COORDINATION ABNORMAL [None]
  - CORONARY ARTERY STENOSIS [None]
  - HEMIPARESIS [None]
  - MULTIPLE SCLEROSIS [None]
  - PENILE PAIN [None]
  - PLEURAL EFFUSION [None]
  - POLLAKIURIA [None]
  - PROSTATE EXAMINATION ABNORMAL [None]
  - SUPRAPUBIC PAIN [None]
